FAERS Safety Report 8905575 (Version 1)
Quarter: 2012Q4

REPORT INFORMATION
  Report Type: 
  Country: US (occurrence: US)
  Receive Date: 20121113
  Receipt Date: 20121113
  Transmission Date: 20130627
  Serious: Yes (Life-Threatening)
  Sender: FDA-Public Use
  Company Number: US-B.I. PHARMACEUTICALS,INC./RIDGEFIELD-2012-BP-27499BP

PATIENT
  Age: 60 Year
  Sex: Female

DRUGS (5)
  1. SPIRIVA [Suspect]
     Indication: CHRONIC OBSTRUCTIVE PULMONARY DISEASE
     Dosage: 18 mcg
     Route: 055
     Dates: start: 2007
  2. HYDROCHLOROTHIAZIDE [Concomitant]
     Indication: HYPERTENSION
     Route: 048
     Dates: start: 2002
  3. ALLEGRA [Concomitant]
     Indication: HYPERSENSITIVITY
     Dosage: 180 mg
     Route: 048
     Dates: start: 2007
  4. SYMBICORT [Concomitant]
     Indication: CHRONIC OBSTRUCTIVE PULMONARY DISEASE
     Dosage: 1300 NR
     Route: 055
     Dates: start: 2007
  5. FLONASE [Concomitant]
     Indication: HYPERSENSITIVITY
     Route: 045
     Dates: start: 2007

REACTIONS (2)
  - Breast cancer [Not Recovered/Not Resolved]
  - Product quality issue [Recovered/Resolved]
